FAERS Safety Report 10009695 (Version 2)
Quarter: 2014Q1

REPORT INFORMATION
  Report Type: Spontaneous
  Country: US (occurrence: US)
  Receive Date: 20140312
  Receipt Date: 20140312
  Transmission Date: 20141002
  Serious: No
  Sender: FDA-Public Use
  Company Number: US-INCYTE CORPORATION-2012IN001638

PATIENT
  Age: 77 Year
  Sex: Female
  Weight: 67.76 kg

DRUGS (10)
  1. JAKAFI [Suspect]
     Indication: MYELOFIBROSIS
     Dosage: 20 MG, BID
     Route: 048
     Dates: start: 20120512, end: 2012
  2. JAKAFI [Suspect]
     Dosage: NOT SPECIFIED (DOSE DECREASED)
     Route: 048
     Dates: start: 2012
  3. HYDROCHLOROTHIAZIDE [Concomitant]
  4. FOLIC ACID [Concomitant]
  5. ZOLOFT [Concomitant]
  6. VITAMIN D [Concomitant]
  7. IRON [Concomitant]
     Indication: SUPPLEMENTATION THERAPY
  8. ASPIRIN [Concomitant]
  9. SYNTHROID [Concomitant]
  10. URSODIOL [Concomitant]

REACTIONS (3)
  - Eye infection [Recovered/Resolved]
  - Tooth infection [Recovered/Resolved]
  - Asthenia [Unknown]
